FAERS Safety Report 13214983 (Version 1)
Quarter: 2017Q1

REPORT INFORMATION
  Report Type: Spontaneous
  Country: US (occurrence: US)
  Receive Date: 20170210
  Receipt Date: 20170210
  Transmission Date: 20170428
  Serious: No
  Sender: FDA-Public Use
  Company Number: GXBR2016US002647

PATIENT
  Age: 65 Year
  Sex: Female

DRUGS (1)
  1. CLOBETASOL PROPIONATE. [Suspect]
     Active Substance: CLOBETASOL PROPIONATE
     Indication: PRURITUS
     Dosage: 1 DF, QD FOR 4 WEEKS
     Route: 061
     Dates: start: 20160821, end: 20160821

REACTIONS (4)
  - Skin burning sensation [Recovered/Resolved]
  - Pain [Recovered/Resolved]
  - Skin warm [Recovered/Resolved]
  - Erythema [Recovered/Resolved]

NARRATIVE: CASE EVENT DATE: 20160821
